FAERS Safety Report 9344217 (Version 1)
Quarter: 2013Q2

REPORT INFORMATION
  Report Type: Spontaneous
  Country: NZ (occurrence: NZ)
  Receive Date: 20130612
  Receipt Date: 20130612
  Transmission Date: 20140414
  Serious: Yes (Hospitalization)
  Sender: FDA-Public Use
  Company Number: NZ-JNJFOC-20130519457

PATIENT
  Sex: Female

DRUGS (1)
  1. REMICADE [Suspect]
     Indication: COLITIS ULCERATIVE
     Dosage: MAINTENANCE INFUSIONS FOR OVER 6/12
     Route: 042

REACTIONS (3)
  - Actinic keratosis [Unknown]
  - Squamous cell carcinoma [Unknown]
  - Rash [Recovering/Resolving]
